FAERS Safety Report 4836327-9 (Version None)
Quarter: 2005Q4

REPORT INFORMATION
  Report Type: 
  Country: None (occurrence: None)
  Receive Date: 20051118
  Receipt Date: 20051110
  Transmission Date: 20060501
  Serious: Yes (Hospitalization, Other)
  Sender: FDA-Public Use
  Company Number: HQWYE497110NOV05

PATIENT
  Age: 62 Year
  Sex: Female

DRUGS (15)
  1. PANTOLOC (PANTOPRAZOLE, TABLET, DELAYED RELEASE) [Suspect]
     Indication: GASTRIC ULCER
     Dosage: 40 MG 1X PER 1 DAY
     Route: 048
  2. EVISTA [Concomitant]
  3. CALCIUM CARBONATE (CALCIUM CARBONATE) [Concomitant]
  4. COLECALCIFEROL (COLECALCIFEROL) [Concomitant]
  5. NEURONTIN [Concomitant]
  6. HALCION [Suspect]
     Dosage: 0.25 MG 1X PER 1 DAY
     Route: 048
  7. TIZANIDINE HCL [Suspect]
     Indication: MUSCLE SPASMS
     Dosage: 6 MG 1X PER 1 DAY
     Route: 048
  8. ALLOPURINOL [Suspect]
     Indication: ACQUIRED PYRIMIDINE METABOLISM DISORDER
     Dosage: 100 MG 1X PER 1 DAY
     Route: 048
  9. ALLOPURINOL [Suspect]
     Indication: PURINE METABOLISM DISORDER
     Dosage: 100 MG 1X PER 1 DAY
     Route: 048
  10. VALTREX [Suspect]
     Indication: HERPES VIRUS INFECTION
     Dosage: 500 MG 2X PER 1 DAY
     Route: 048
     Dates: start: 20050921, end: 20050922
  11. TRAZODONE HCL [Concomitant]
  12. DEQUONAL (BENZALKONIUM CHLORIDE/DEQUALINIUM CHLORIDE) [Concomitant]
  13. ZOVIRAX [Concomitant]
  14. HYDROXYPROPYL METHYLCELLULOSE (HYPROMELLOSE) [Concomitant]
  15. MELPHALAN (MELPHALAN) [Concomitant]

REACTIONS (5)
  - DRUG ERUPTION [None]
  - PAIN [None]
  - PRURITUS [None]
  - PYREXIA [None]
  - RASH GENERALISED [None]
